FAERS Safety Report 22113447 (Version 6)
Quarter: 2023Q2

REPORT INFORMATION
  Report Type: Report from Study
  Country: US (occurrence: US)
  Receive Date: 20230320
  Receipt Date: 20230525
  Transmission Date: 20230721
  Serious: No
  Sender: FDA-Public Use
  Company Number: US-002147023-NVSC2023US058992

PATIENT
  Age: 43 Year
  Sex: Female

DRUGS (1)
  1. KESIMPTA [Suspect]
     Active Substance: OFATUMUMAB
     Indication: Relapsing multiple sclerosis
     Dosage: UNK UNK, QW
     Route: 058
     Dates: start: 20230307

REACTIONS (13)
  - Influenza like illness [Unknown]
  - Pyrexia [Unknown]
  - Feeling cold [Unknown]
  - Tremor [Recovering/Resolving]
  - Visual impairment [Unknown]
  - Oropharyngeal pain [Unknown]
  - Upper respiratory tract congestion [Unknown]
  - Productive cough [Unknown]
  - Headache [Unknown]
  - Back pain [Unknown]
  - Nasopharyngitis [Unknown]
  - Muscle tightness [Unknown]
  - Weight bearing difficulty [Unknown]

NARRATIVE: CASE EVENT DATE: 20230307
